FAERS Safety Report 4351130-4 (Version None)
Quarter: 2004Q2

REPORT INFORMATION
  Report Type: 
  Country: None (occurrence: None)
  Receive Date: 20040430
  Receipt Date: 20040422
  Transmission Date: 20050107
  Serious: Yes (Hospitalization)
  Sender: FDA-Public Use
  Company Number: JP-MERCK-0404USA02078

PATIENT
  Age: 66 Year
  Sex: Female

DRUGS (4)
  1. CANDESARTAN CILEXETIL [Concomitant]
     Indication: HYPERTENSION
     Route: 065
     Dates: start: 20001101, end: 20040418
  2. MEFRUSIDE [Concomitant]
     Indication: HYPERTENSION
     Route: 065
     Dates: start: 20040416, end: 20040418
  3. ZOCOR [Suspect]
     Indication: HYPERLIPIDAEMIA
     Route: 048
     Dates: start: 20021101, end: 20040418
  4. TELMISARTAN [Suspect]
     Indication: HYPERTENSION
     Route: 048
     Dates: start: 20040416, end: 20040418

REACTIONS (3)
  - BLOOD CREATINE PHOSPHOKINASE INCREASED [None]
  - NASOPHARYNGITIS [None]
  - TETANY [None]
